FAERS Safety Report 23427517 (Version 2)
Quarter: 2024Q1

REPORT INFORMATION
  Report Type: Report from Study
  Country: CA (occurrence: CA)
  Receive Date: 20240122
  Receipt Date: 20240124
  Transmission Date: 20240409
  Serious: Yes (Other)
  Sender: FDA-Public Use
  Company Number: CA-AMGEN-CANSL2023215393

PATIENT
  Age: 26 Year
  Sex: Female
  Weight: 64.5 kg

DRUGS (3)
  1. AVSOLA [Suspect]
     Active Substance: INFLIXIMAB-AXXQ
     Indication: Crohn^s disease
     Dosage: 600 MILLIGRAM, Q8WK
     Route: 065
     Dates: start: 20230731
  2. AVSOLA [Suspect]
     Active Substance: INFLIXIMAB-AXXQ
     Dosage: 600 MILLIGRAM, Q8WK
     Route: 065
  3. AVSOLA [Suspect]
     Active Substance: INFLIXIMAB-AXXQ
     Dosage: 5MG/KG 600MG , Q8WK
     Route: 065

REACTIONS (11)
  - Dyspnoea [Recovering/Resolving]
  - Flushing [Recovering/Resolving]
  - Blood pressure immeasurable [Recovering/Resolving]
  - Throat tightness [Recovering/Resolving]
  - Head discomfort [Recovering/Resolving]
  - Paranasal sinus discomfort [Recovering/Resolving]
  - Heart rate abnormal [Recovering/Resolving]
  - Oropharyngeal pain [Not Recovered/Not Resolved]
  - Urticaria [Recovered/Resolved]
  - Anxiety [Recovering/Resolving]
  - Off label use [Unknown]

NARRATIVE: CASE EVENT DATE: 20230731
